FAERS Safety Report 4351446-1 (Version None)
Quarter: 2004Q2

REPORT INFORMATION
  Report Type: 
  Country: None (occurrence: None)
  Receive Date: 20040503
  Receipt Date: 20030714
  Transmission Date: 20050107
  Serious: Yes (Other)
  Sender: FDA-Public Use
  Company Number: US-ROCHE-342492

PATIENT
  Age: 54 Year
  Sex: Male

DRUGS (7)
  1. PEGASYS [Suspect]
     Indication: HEPATITIS C
     Route: 058
     Dates: start: 20030212, end: 20030715
  2. PEGASYS [Suspect]
     Route: 058
     Dates: start: 20030722, end: 20030815
  3. PEGASYS [Suspect]
     Route: 058
     Dates: start: 20040415
  4. COPEGUS [Suspect]
     Indication: HEPATITIS C
     Dosage: REGIMEN REPORTED AS 2 IN AM AND 3 IN PM.
     Route: 048
     Dates: start: 20030212, end: 20030715
  5. COPEGUS [Suspect]
     Dosage: REGIMEN 2 IN AM 3 IN PM.
     Route: 048
     Dates: start: 20030722, end: 20030815
  6. COPEGUS [Suspect]
     Route: 048
     Dates: start: 20040415
  7. NAPROXEN [Concomitant]
     Route: 048

REACTIONS (3)
  - DEAFNESS NEUROSENSORY [None]
  - DEAFNESS UNILATERAL [None]
  - INFECTED SEBACEOUS CYST [None]
